FAERS Safety Report 7798409-1 (Version None)
Quarter: 2011Q4

REPORT INFORMATION
  Report Type: 
  Country: None (occurrence: None)
  Receive Date: 20111005
  Receipt Date: 20110927
  Transmission Date: 20120403
  Serious: Yes (Other)
  Sender: FDA-Public Use
  Company Number: US-MYLANLABS-2011S1020382

PATIENT
  Sex: Female

DRUGS (1)
  1. MAXZIDE [Suspect]
     Indication: BLOOD PRESSURE INCREASED

REACTIONS (3)
  - BLINDNESS TRANSIENT [None]
  - MENTAL IMPAIRMENT [None]
  - HEADACHE [None]
